FAERS Safety Report 9846897 (Version 1)
Quarter: 2013Q4

REPORT INFORMATION
  Report Type: Spontaneous
  Country: US (occurrence: None)
  Receive Date: 20131219
  Receipt Date: 20131219
  Transmission Date: 20140711
  Serious: Yes (Hospitalization)
  Sender: FDA-Public Use
  Company Number: 163-20785-13072269

PATIENT
  Age: 62 Year
  Sex: Male

DRUGS (1)
  1. THALOMID (THALIDOMIDE) (100 MILLIGRAM, CAPSULES) [Suspect]
     Dosage: 100 MG , 1 IN 1 D, PO THERAPY DATES 21MAR2013-06JUL2013
     Route: 048
     Dates: start: 20130321, end: 20130706

REACTIONS (2)
  - Blood pressure abnormal [None]
  - Asthenia [None]
